FAERS Safety Report 24327386 (Version 1)
Quarter: 2024Q3

REPORT INFORMATION
  Report Type: Spontaneous
  Country: DE (occurrence: DE)
  Receive Date: 20240917
  Receipt Date: 20240917
  Transmission Date: 20241016
  Serious: Yes (Other)
  Sender: RANBAXY
  Company Number: DE-SUN PHARMACEUTICAL INDUSTRIES LTD-2024RR-468051

PATIENT
  Age: 62 Year
  Sex: Female
  Weight: 96 kg

DRUGS (13)
  1. CINNARIZINE\DIMENHYDRINATE [Suspect]
     Active Substance: CINNARIZINE\DIMENHYDRINATE
     Indication: Dizziness
     Dosage: 1 - 1 - 1 - 0
     Route: 065
  2. LEVETIRACETAM [Suspect]
     Active Substance: LEVETIRACETAM
     Indication: Product used for unknown indication
     Dosage: 7.5 ML-10ML-0
     Route: 065
  3. LEVETIRACETAM [Suspect]
     Active Substance: LEVETIRACETAM
     Dosage: 10 ML, DAILY
     Route: 065
     Dates: start: 201801
  4. LEVETIRACETAM [Suspect]
     Active Substance: LEVETIRACETAM
     Dosage: 2 ML, DAILY
     Route: 065
     Dates: start: 201603
  5. LEVETIRACETAM [Suspect]
     Active Substance: LEVETIRACETAM
     Dosage: 2 ML, DAILY
     Route: 065
     Dates: start: 201802
  6. COMIRNATY (TOZINAMERAN) [Suspect]
     Active Substance: TOZINAMERAN
     Indication: COVID-19 immunisation
     Dosage: DOSE 2, 0.3 ML SINGLE
     Route: 065
     Dates: end: 20210707
  7. FOLIC ACID STADA [Concomitant]
     Indication: Product used for unknown indication
     Dosage: 2 DF, DAILY
     Route: 065
     Dates: start: 201601
  8. FOLIC ACID STADA [Concomitant]
     Dosage: 5 MG, AS NEEDED
     Route: 065
     Dates: start: 2015
  9. FOLIC ACID STADA [Concomitant]
     Dosage: 1 DF, DAILY
     Route: 065
     Dates: start: 201602
  10. PANTOPRAZOLE [Concomitant]
     Active Substance: PANTOPRAZOLE
     Indication: Product used for unknown indication
     Dosage: 40 MG, 1X/DAY (0-0-1-0)
     Route: 065
     Dates: start: 2015
  11. MAGNESIUM [Concomitant]
     Active Substance: MAGNESIUM
     Indication: Product used for unknown indication
     Dosage: 1X/DAY (0-0-1-0)
     Route: 065
     Dates: start: 2015
  12. CHOLECALCIFEROL [Concomitant]
     Active Substance: CHOLECALCIFEROL
     Indication: Product used for unknown indication
     Dosage: 2 DF, WEEKLY
     Route: 065
  13. CHOLECALCIFEROL [Concomitant]
     Active Substance: CHOLECALCIFEROL
     Dosage: 20000 IU, AS NEEDED
     Route: 065
     Dates: start: 2015

REACTIONS (49)
  - Cardiomyopathy [Not Recovered/Not Resolved]
  - Leukopenia [Unknown]
  - Nasal septum deviation [Unknown]
  - Headache [Not Recovered/Not Resolved]
  - Dizziness [Not Recovered/Not Resolved]
  - Lymphopenia [Unknown]
  - Fibrin D dimer increased [Unknown]
  - Pain in extremity [Not Recovered/Not Resolved]
  - Blood pressure abnormal [Not Recovered/Not Resolved]
  - Arthralgia [Not Recovered/Not Resolved]
  - Mood swings [Unknown]
  - Vaccination site pain [Recovered/Resolved]
  - Myalgia [Not Recovered/Not Resolved]
  - Fall [Unknown]
  - Palpitations [Unknown]
  - Brain fog [Unknown]
  - Memory impairment [Not Recovered/Not Resolved]
  - Nervous system disorder [Not Recovered/Not Resolved]
  - Aphasia [Not Recovered/Not Resolved]
  - Malaise [Not Recovered/Not Resolved]
  - Condition aggravated [Unknown]
  - Respiratory failure [Not Recovered/Not Resolved]
  - Muscle spasms [Not Recovered/Not Resolved]
  - Atrial fibrillation [Not Recovered/Not Resolved]
  - Somnolence [Unknown]
  - Lymphadenitis [Unknown]
  - Hypertension [Unknown]
  - Listless [Unknown]
  - Oral papilloma [Unknown]
  - Fatigue [Not Recovered/Not Resolved]
  - Intervertebral disc protrusion [Unknown]
  - Post vaccination syndrome [Unknown]
  - Paraesthesia [Not Recovered/Not Resolved]
  - Tricuspid valve incompetence [Unknown]
  - Depressed level of consciousness [Not Recovered/Not Resolved]
  - Movement disorder [Unknown]
  - Dyspnoea [Not Recovered/Not Resolved]
  - Hypersomnia [Unknown]
  - Neuralgia [Not Recovered/Not Resolved]
  - Vertigo [Unknown]
  - Dyspnoea exertional [Unknown]
  - Chronic fatigue syndrome [Unknown]
  - Asthenia [Unknown]
  - Disturbance in attention [Unknown]
  - Cardiac failure [Not Recovered/Not Resolved]
  - Arrhythmia [Not Recovered/Not Resolved]
  - Pain [Not Recovered/Not Resolved]
  - Limb discomfort [Not Recovered/Not Resolved]
  - Electric shock sensation [Unknown]

NARRATIVE: CASE EVENT DATE: 20210701
